FAERS Safety Report 21036386 (Version 1)
Quarter: 2022Q3

REPORT INFORMATION
  Report Type: Spontaneous
  Country: US (occurrence: US)
  Receive Date: 20220702
  Receipt Date: 20220702
  Transmission Date: 20221026
  Serious: Yes (Hospitalization)
  Sender: FDA-Public Use
  Company Number: US-CELGENE-USA-20210806716

PATIENT
  Age: 58 Year
  Sex: Female
  Weight: 51.26 kg

DRUGS (22)
  1. AZACITIDINE [Suspect]
     Active Substance: AZACITIDINE
     Indication: Myelodysplastic syndrome
     Dosage: 75 MILLIGRAM/SQ. METER?7 DAYS WITHIN THE FIRST 9 DAYS OF EACH 28 DAY CYCLE
     Route: 042
     Dates: start: 20210517, end: 20210629
  2. VENETOCLAX [Suspect]
     Active Substance: VENETOCLAX
     Indication: Myelodysplastic syndrome
     Dosage: FREQUENCY TEXT: NOT PROVIDED
     Route: 048
  3. BENTYL [Concomitant]
     Active Substance: DICYCLOMINE HYDROCHLORIDE
     Indication: Colitis
     Dosage: 30 MILLIGRAM
     Route: 048
     Dates: start: 20171030
  4. DEPAKOTE [Concomitant]
     Active Substance: DIVALPROEX SODIUM
     Indication: Anxiety
     Dosage: 1500 MILLIGRAM
     Route: 048
     Dates: start: 20171030
  5. DEXILANT [Concomitant]
     Active Substance: DEXLANSOPRAZOLE
     Indication: Gastrooesophageal reflux disease
     Dosage: 60 MILLIGRAM
     Route: 048
     Dates: start: 20171030
  6. GABAPENTIN [Concomitant]
     Active Substance: GABAPENTIN
     Indication: Peripheral sensory neuropathy
     Dosage: 600 MILLIGRAM
     Route: 048
     Dates: start: 20171030
  7. XANAX [Concomitant]
     Active Substance: ALPRAZOLAM
     Indication: Anxiety
     Dosage: 3 MILLIGRAM
     Route: 048
     Dates: start: 20171030
  8. PROMETHAZINE [Concomitant]
     Active Substance: PROMETHAZINE HYDROCHLORIDE
     Indication: Nausea
     Dosage: FREQUENCY TEXT: AS REQUIRED
     Route: 048
     Dates: start: 20170801
  9. ZANAFLEX [Concomitant]
     Active Substance: TIZANIDINE HYDROCHLORIDE
     Indication: Muscle spasms
     Dosage: 4 MILLIGRAM
     Route: 047
     Dates: start: 20170801
  10. ADDERALL [Concomitant]
     Active Substance: AMPHETAMINE ASPARTATE\AMPHETAMINE SULFATE\DEXTROAMPHETAMINE SACCHARATE\DEXTROAMPHETAMINE SULFATE
     Indication: Attention deficit hyperactivity disorder
     Dosage: 60 MILLIGRAM
     Route: 048
     Dates: start: 20171030
  11. Hydrocodone- acetaminophen [Concomitant]
     Indication: Back pain
     Dosage: 10-325 MG
     Route: 048
     Dates: start: 20171030
  12. LASIX [Concomitant]
     Active Substance: FUROSEMIDE
     Indication: Oedema peripheral
     Dosage: 20 MILLIGRAM
     Route: 048
     Dates: start: 20171030
  13. Budesonide Dr-Er [Concomitant]
     Indication: Colitis
     Dosage: 3 MILLIGRAM
     Route: 048
     Dates: start: 20181102
  14. LIDOCAINE VISCOUS [Concomitant]
     Active Substance: LIDOCAINE HYDROCHLORIDE
     Indication: Stomatitis
     Dosage: FREQUENCY TEXT: AS NEEDED
     Route: 048
     Dates: start: 20201123
  15. ACYCLOVIR [Concomitant]
     Active Substance: ACYCLOVIR
     Indication: Infection prophylaxis
     Dosage: 1600 MILLIGRAM
     Route: 048
     Dates: start: 20210430
  16. DIFLUCAN [Concomitant]
     Active Substance: FLUCONAZOLE
     Indication: Infection prophylaxis
     Dosage: 400 MILLIGRAM
     Route: 048
     Dates: start: 20210430
  17. LEVOFLOXACIN [Concomitant]
     Active Substance: LEVOFLOXACIN
     Indication: Infection prophylaxis
     Dosage: 500 MILLIGRAM
     Route: 048
     Dates: start: 20210430
  18. COMPAZINE [Concomitant]
     Active Substance: PROCHLORPERAZINE MALEATE
     Indication: Nausea
     Dosage: FREQUENCY TEXT: AS REQUIRED
     Route: 042
     Dates: start: 20210517
  19. KYTRIL [Concomitant]
     Active Substance: GRANISETRON HYDROCHLORIDE
     Indication: Nausea
     Dosage: FREQUENCY TEXT: AS REQUIRED
     Route: 042
     Dates: start: 20210517
  20. ONDANSETRON HCL [Concomitant]
     Active Substance: ONDANSETRON HYDROCHLORIDE
     Indication: Vomiting
     Dosage: FREQUENCY TEXT: 1 AS REQUIRED
     Route: 048
     Dates: start: 20210525
  21. CHLORHEXIDINE GLUCONATE [Concomitant]
     Active Substance: CHLORHEXIDINE GLUCONATE
     Indication: Stomatitis
     Dosage: FREQUENCY TEXT: 1 AS REQUIRED
     Route: 048
     Dates: start: 20210614
  22. DRONABINOL [Concomitant]
     Active Substance: DRONABINOL
     Indication: Decreased appetite
     Dosage: 5 MILLIGRAM
     Route: 048
     Dates: start: 20210621

REACTIONS (1)
  - Pyrexia [Recovered/Resolved]

NARRATIVE: CASE EVENT DATE: 20210811
